FAERS Safety Report 21134504 (Version 1)
Quarter: 2022Q3

REPORT INFORMATION
  Report Type: Spontaneous
  Country: US (occurrence: US)
  Receive Date: 20220726
  Receipt Date: 20220726
  Transmission Date: 20221026
  Serious: Yes (Other)
  Sender: FDA-Public Use
  Company Number: US-BRISTOL-MYERS SQUIBB COMPANY-2022-076487

PATIENT
  Age: 82 Year
  Sex: Female
  Weight: 67.131 kg

DRUGS (1)
  1. POMALYST [Suspect]
     Active Substance: POMALIDOMIDE
     Indication: Plasma cell myeloma
     Dosage: 21SDAYS AND 7 DAYS OFF
     Route: 048

REACTIONS (1)
  - Drug intolerance [Unknown]
